FAERS Safety Report 11437698 (Version 1)
Quarter: 2015Q3

REPORT INFORMATION
  Report Type: Spontaneous
  Country: US (occurrence: US)
  Receive Date: 20150821
  Receipt Date: 20150821
  Transmission Date: 20151125
  Serious: No
  Sender: FDA-Public Use
  Company Number: US-ELI_LILLY_AND_COMPANY-US200706003578

PATIENT
  Age: 41 Year
  Sex: Female

DRUGS (4)
  1. TOPAMAX [Concomitant]
     Active Substance: TOPIRAMATE
     Indication: MIGRAINE
     Dosage: 100 MG, UNK
     Dates: start: 200702
  2. CYMBALTA [Suspect]
     Active Substance: DULOXETINE HYDROCHLORIDE
     Dosage: 60 MG, UNK
     Dates: start: 200703, end: 20070519
  3. MAGNESIUM [Concomitant]
     Active Substance: MAGNESIUM
     Indication: MIGRAINE
     Dosage: 250 MG, 3/D
     Dates: start: 200702
  4. ORAL CONTRACEPTIVE NOS [Concomitant]
     Active Substance: UNSPECIFIED INGREDIENT
     Indication: CONTRACEPTION

REACTIONS (5)
  - Asthenia [Recovered/Resolved]
  - Hangover [Recovered/Resolved]
  - Feeling abnormal [Recovering/Resolving]
  - Dizziness [Recovered/Resolved]
  - Visual impairment [Recovering/Resolving]

NARRATIVE: CASE EVENT DATE: 20070520
